FAERS Safety Report 6085024-3 (Version None)
Quarter: 2009Q1

REPORT INFORMATION
  Report Type: 
  Country: None (occurrence: None)
  Receive Date: 20090220
  Receipt Date: 20090211
  Transmission Date: 20090719
  Serious: Yes (Other)
  Sender: FDA-Public Use
  Company Number: RU-BAYER-200913710GPV

PATIENT
  Age: 25 Year
  Sex: Female

DRUGS (1)
  1. YARINA [Suspect]
     Indication: CONTRACEPTION
     Route: 048
     Dates: start: 20090120, end: 20090208

REACTIONS (2)
  - HYPOSOMNIA [None]
  - VARICOSE VEIN [None]
